FAERS Safety Report 5405920-7 (Version None)
Quarter: 2007Q3

REPORT INFORMATION
  Report Type: 
  Country: None (occurrence: None)
  Receive Date: 20070802
  Receipt Date: 20070717
  Transmission Date: 20080115
  Serious: Yes (Death)
  Sender: FDA-Public Use
  Company Number: 8025453

PATIENT
  Age: 52 Year
  Sex: Female

DRUGS (1)
  1. TUSSIONEX [Suspect]

REACTIONS (1)
  - DEATH [None]
